FAERS Safety Report 6073897-X (Version None)
Quarter: 2009Q1

REPORT INFORMATION
  Report Type: 
  Country: None (occurrence: None)
  Receive Date: 20090211
  Receipt Date: 20090202
  Transmission Date: 20090719
  Serious: Yes (Life-Threatening, Hospitalization, Other)
  Sender: FDA-Public Use
  Company Number: US-MERCK-0901USA03380

PATIENT
  Age: 58 Year
  Sex: Male
  Weight: 70 kg

DRUGS (26)
  1. ISENTRESS [Suspect]
     Indication: HIV INFECTION
     Route: 048
     Dates: start: 20081114, end: 20081120
  2. TRUVADA [Concomitant]
     Route: 065
  3. PNEUMOVAX 23 [Suspect]
     Indication: PROPHYLAXIS
     Route: 065
     Dates: start: 20081113
  4. TRAZODONE HYDROCHLORIDE [Suspect]
     Route: 065
  5. VALIUM [Suspect]
     Route: 065
  6. SOMA [Concomitant]
     Route: 065
  7. OXYCONTIN [Concomitant]
     Route: 065
  8. ELAVIL [Concomitant]
     Route: 065
  9. ATENOLOL COMP [Concomitant]
     Route: 065
  10. NEXIUM [Concomitant]
     Route: 065
  11. NEURONTIN [Concomitant]
     Route: 065
  12. DIAZEPAN [Concomitant]
     Route: 065
  13. TOPAMAX [Concomitant]
     Route: 065
  14. APO-CLONIDINE [Concomitant]
     Route: 065
  15. LACTULOSE [Concomitant]
     Route: 065
  16. MIRALAX [Concomitant]
     Route: 065
     Dates: start: 20080505
  17. TRIZIVIR [Concomitant]
     Route: 065
  18. POTASSIUM CHLORIDE [Concomitant]
     Route: 065
  19. NASONEX [Concomitant]
     Route: 065
  20. NORVIR [Suspect]
     Route: 065
  21. LEXIVA [Concomitant]
     Route: 065
  22. DEPO-TESTOSTERONE [Concomitant]
     Route: 065
  23. EFFEXOR XR [Concomitant]
     Route: 065
  24. QVAR 40 [Concomitant]
     Route: 065
  25. ADVAIR DISKUS 100/50 [Concomitant]
     Route: 065
  26. NEOMYCIN [Concomitant]
     Route: 065

REACTIONS (12)
  - BIPOLAR DISORDER [None]
  - CARDIO-RESPIRATORY ARREST [None]
  - DEMENTIA [None]
  - HYPERTENSION [None]
  - ISCHAEMIA [None]
  - OVERDOSE [None]
  - PSYCHOTIC DISORDER [None]
  - RESPIRATORY FAILURE [None]
  - SOMNOLENCE [None]
  - SUICIDE ATTEMPT [None]
  - THERAPY CESSATION [None]
  - WEIGHT DECREASED [None]
